FAERS Safety Report 4846116-7 (Version None)
Quarter: 2005Q4

REPORT INFORMATION
  Report Type: 
  Country: None (occurrence: None)
  Receive Date: 20051201
  Receipt Date: 20051116
  Transmission Date: 20060501
  Serious: Yes (Death)
  Sender: FDA-Public Use
  Company Number: 2005149720

PATIENT
  Age: 70 Year
  Sex: Female
  Weight: 45.6 kg

DRUGS (8)
  1. IRINOTECAN HCL [Suspect]
     Indication: GASTRIC CANCER
     Dosage: 20 MG, INTRAVENOUS
     Route: 042
     Dates: start: 20051015, end: 20051015
  2. CISPLATIN [Concomitant]
  3. DECADRON [Concomitant]
  4. LASIX [Concomitant]
  5. GLYCEOL (FRUCTOSE, GLYCEROL) [Concomitant]
  6. NICARDIPINE HCL [Concomitant]
  7. OMEPRAZOLE [Concomitant]
  8. FUTHAN (NAFAMOSTAT MESILATE) [Concomitant]

REACTIONS (12)
  - ABDOMINAL PAIN [None]
  - AGONAL DEATH STRUGGLE [None]
  - BLOOD PRESSURE DECREASED [None]
  - DIARRHOEA [None]
  - HEART RATE INCREASED [None]
  - HYPERGLYCAEMIA [None]
  - INTESTINAL PERFORATION [None]
  - MENTAL DISORDER [None]
  - OPHTHALMOLOGICAL EXAMINATION ABNORMAL [None]
  - OXYGEN SATURATION DECREASED [None]
  - THIRST [None]
  - VOMITING [None]
